FAERS Safety Report 18113744 (Version 1)
Quarter: 2020Q3

REPORT INFORMATION
  Report Type: Report from Study
  Country: CA (occurrence: CA)
  Receive Date: 20200805
  Receipt Date: 20200805
  Transmission Date: 20201103
  Serious: Yes (Other)
  Sender: FDA-Public Use
  Company Number: CA-UCBSA-2020025811

PATIENT
  Age: 59 Year
  Sex: Female

DRUGS (1)
  1. CERTOLIZUMAB PEGOL AUTOCLICKS [Suspect]
     Active Substance: CERTOLIZUMAB PEGOL
     Indication: ANKYLOSING SPONDYLITIS
     Dosage: 200 MILLIGRAM, EV 2 WEEKS(QOW)
     Route: 058
     Dates: start: 20200628, end: 20200628

REACTIONS (5)
  - Depressive symptom [Unknown]
  - Psoriasis [Unknown]
  - Headache [Unknown]
  - Off label use [Unknown]
  - Cough [Unknown]

NARRATIVE: CASE EVENT DATE: 2020
